FAERS Safety Report 9938129 (Version 1)
Quarter: 2014Q1

REPORT INFORMATION
  Report Type: Spontaneous
  Country: CH (occurrence: CH)
  Receive Date: 20140303
  Receipt Date: 20140303
  Transmission Date: 20141002
  Serious: Yes (Hospitalization, Other)
  Sender: FDA-Public Use
  Company Number: CH-BAYER-2014-030867

PATIENT
  Sex: Male

DRUGS (1)
  1. NEXAVAR [Suspect]
     Indication: HEPATIC CANCER
     Dosage: 800 MG, QD
     Route: 048
     Dates: start: 20131115, end: 20140217

REACTIONS (2)
  - Malignant neoplasm progression [None]
  - General physical health deterioration [None]
